FAERS Safety Report 10079367 (Version 1)
Quarter: 2014Q2

REPORT INFORMATION
  Report Type: Spontaneous
  Country: EG (occurrence: EG)
  Receive Date: 20140415
  Receipt Date: 20140415
  Transmission Date: 20141212
  Serious: Yes (Other)
  Sender: FDA-Public Use
  Company Number: EG-ABBVIE-14P-048-1226049-00

PATIENT
  Age: 15 Year
  Sex: Female

DRUGS (2)
  1. DEPAKINE [Suspect]
     Indication: CONVULSION
     Route: 048
     Dates: start: 20130301
  2. FOLIC ACID [Concomitant]
     Indication: PRODUCT USED FOR UNKNOWN INDICATION

REACTIONS (1)
  - Cataract [Recovered/Resolved]
